FAERS Safety Report 21092270 (Version 1)
Quarter: 2022Q3

REPORT INFORMATION
  Report Type: Spontaneous
  Country: NL (occurrence: NL)
  Receive Date: 20220718
  Receipt Date: 20220718
  Transmission Date: 20221026
  Serious: Yes (Other)
  Sender: FDA-Public Use
  Company Number: NL-LRB-00818379

PATIENT
  Sex: Male
  Weight: 60 kg

DRUGS (1)
  1. TERBINAFINE [Suspect]
     Active Substance: TERBINAFINE
     Indication: Onychomycosis
     Dosage: 250 MILLIGRAM, ONCE A DAY
     Route: 065
     Dates: start: 202204, end: 20220623

REACTIONS (5)
  - Intentional self-injury [Recovered/Resolved]
  - Asthenia [Recovered/Resolved]
  - Flat affect [Recovered/Resolved]
  - Negative thoughts [Recovered/Resolved]
  - Depressed mood [Recovered/Resolved]
